FAERS Safety Report 4396900-1 (Version None)
Quarter: 2004Q3

REPORT INFORMATION
  Report Type: 
  Country: None (occurrence: None)
  Receive Date: 20040708
  Receipt Date: 20040629
  Transmission Date: 20050211
  Serious: Yes (Other)
  Sender: FDA-Public Use
  Company Number: 2004-06-2183

PATIENT
  Age: 59 Year
  Sex: Female

DRUGS (1)
  1. COLLATAMP G (GENTAMICIN/COLLAGEN IMPLANT) SPONGE IMPLANT [Suspect]
     Dosage: IMPLANT

REACTIONS (1)
  - NEPHRITIS INTERSTITIAL [None]
